FAERS Safety Report 9739506 (Version 1)
Quarter: 2013Q4

REPORT INFORMATION
  Report Type: Spontaneous
  Country: US (occurrence: US)
  Receive Date: 20131209
  Receipt Date: 20131209
  Transmission Date: 20140711
  Serious: Yes (Other)
  Sender: FDA-Public Use
  Company Number: US-BAYER-2013-149403

PATIENT
  Age: 58 Year
  Sex: Female

DRUGS (1)
  1. MAGNEVIST [Suspect]
     Indication: NUCLEAR MAGNETIC RESONANCE IMAGING SPINAL
     Dosage: 12 ML, ONCE
     Route: 042
     Dates: start: 20131203

REACTIONS (8)
  - Contrast media allergy [None]
  - Pruritus generalised [None]
  - Feeling hot [None]
  - Dyspnoea [None]
  - Erythema [None]
  - Urticaria [None]
  - Haemorrhage subcutaneous [None]
  - Respiratory rate increased [None]
